FAERS Safety Report 10071259 (Version 2)
Quarter: 2014Q2

REPORT INFORMATION
  Report Type: Spontaneous
  Country: US (occurrence: US)
  Receive Date: 20140410
  Receipt Date: 20140507
  Transmission Date: 20141212
  Serious: No
  Sender: FDA-Public Use
  Company Number: US-TEVA-475137USA

PATIENT
  Age: 18 Year
  Sex: Female
  Weight: 58.57 kg

DRUGS (2)
  1. PLAN B ONE-STEP [Suspect]
     Indication: POST COITAL CONTRACEPTION
     Dosage: 1.5 MILLIGRAM DAILY;
     Route: 048
     Dates: start: 20140323, end: 20140323
  2. PARAGARD [Suspect]
     Indication: CONTRACEPTION
     Route: 015
     Dates: start: 201306, end: 201308

REACTIONS (2)
  - Inappropriate schedule of drug administration [Recovered/Resolved]
  - Menstruation irregular [Recovered/Resolved]
